FAERS Safety Report 19779284 (Version 1)
Quarter: 2021Q3

REPORT INFORMATION
  Report Type: Spontaneous
  Country: DK (occurrence: DK)
  Receive Date: 20210902
  Receipt Date: 20210902
  Transmission Date: 20211014
  Serious: Yes (Other)
  Sender: FDA-Public Use
  Company Number: DK-ALK-ABELLO A/S-2021AA003346

PATIENT

DRUGS (1)
  1. ACARIZAX [Suspect]
     Active Substance: DERMATOPHAGOIDES FARINAE\DERMATOPHAGOIDES PTERONYSSINUS
     Indication: MITE ALLERGY
     Dosage: UNK
     Dates: start: 20210817, end: 20210825

REACTIONS (9)
  - Abdominal pain [Recovered/Resolved]
  - Throat irritation [Recovered/Resolved]
  - Oral mucosal discolouration [Recovered/Resolved]
  - Haematemesis [Recovered/Resolved]
  - Gastric disorder [Recovered/Resolved]
  - Erythema [Recovered/Resolved]
  - Face oedema [Recovered/Resolved]
  - Pharyngeal erythema [Recovered/Resolved]
  - Product dose omission in error [Recovered/Resolved]

NARRATIVE: CASE EVENT DATE: 20210818
